FAERS Safety Report 12850260 (Version 2)
Quarter: 2016Q4

REPORT INFORMATION
  Report Type: Spontaneous
  Country: PA (occurrence: PA)
  Receive Date: 20161014
  Receipt Date: 20161109
  Transmission Date: 20170207
  Serious: Yes (Other)
  Sender: FDA-Public Use
  Company Number: PHHY2016PA139978

PATIENT
  Sex: Male
  Weight: 2.25 kg

DRUGS (1)
  1. GILENYA [Suspect]
     Active Substance: FINGOLIMOD HYDROCHLORIDE
     Indication: FOETAL EXPOSURE DURING PREGNANCY
     Dosage: MATERNAL DOSE: 0.5 MG, UNSPECIFIED FREQUENCY
     Route: 064

REACTIONS (6)
  - Pulmonary oedema neonatal [Recovered/Resolved]
  - Convulsion neonatal [Recovered/Resolved]
  - Haemoglobin decreased [Recovered/Resolved]
  - Otitis media [Unknown]
  - Foetal exposure during pregnancy [Unknown]
  - Premature baby [Unknown]
